FAERS Safety Report 8888107 (Version 2)
Quarter: 2012Q4

REPORT INFORMATION
  Report Type: Report from Study
  Country: KR (occurrence: KR)
  Receive Date: 20121106
  Receipt Date: 20121129
  Transmission Date: 20130627
  Serious: Yes (Death, Hospitalization)
  Sender: FDA-Public Use
  Company Number: KR-PFIZER INC-2012272308

PATIENT
  Age: 62 Year
  Sex: Male
  Weight: 74 kg

DRUGS (2)
  1. LINEZOLID [Suspect]
     Dosage: UNK
     Route: 048
     Dates: start: 20110512, end: 20120324
  2. BEDAQUILINE [Suspect]
     Indication: TUBERCULOSIS
     Dosage: 200 mg a day
     Route: 048
     Dates: start: 20091229, end: 20100614

REACTIONS (5)
  - Pneumonia [Fatal]
  - Neurotoxicity [Not Recovered/Not Resolved]
  - Cardiac arrest [None]
  - Pneumonia bacterial [None]
  - Multi-organ failure [None]
